FAERS Safety Report 16022512 (Version 13)
Quarter: 2025Q1

REPORT INFORMATION
  Report Type: Spontaneous
  Country: CA (occurrence: CA)
  Receive Date: 20190301
  Receipt Date: 20250320
  Transmission Date: 20250408
  Serious: Yes (Congenital Anomaly, Other)
  Sender: AUROBINDO
  Company Number: CA-AUROBINDO-AUR-APL-2019-010641

PATIENT
  Age: 52 Year
  Sex: Male

DRUGS (71)
  1. DARUNAVIR [Suspect]
     Active Substance: DARUNAVIR
     Indication: HIV infection
     Route: 048
  2. DARUNAVIR [Suspect]
     Active Substance: DARUNAVIR
     Route: 065
  3. DARUNAVIR [Suspect]
     Active Substance: DARUNAVIR
     Indication: HIV infection
     Route: 065
  4. DARUNAVIR [Suspect]
     Active Substance: DARUNAVIR
     Indication: Antiretroviral therapy
     Route: 048
  5. EFAVIRENZ [Suspect]
     Active Substance: EFAVIRENZ
     Indication: HIV infection
     Route: 048
  6. EFAVIRENZ [Suspect]
     Active Substance: EFAVIRENZ
     Route: 065
  7. LAMIVUDINE [Suspect]
     Active Substance: LAMIVUDINE
     Indication: Antiretroviral therapy
     Route: 065
  8. LAMIVUDINE [Suspect]
     Active Substance: LAMIVUDINE
     Indication: HIV infection
     Route: 048
  9. NEVIRAPINE [Suspect]
     Active Substance: NEVIRAPINE
     Indication: HIV infection
     Route: 048
  10. NEVIRAPINE [Suspect]
     Active Substance: NEVIRAPINE
     Route: 065
  11. NEVIRAPINE [Suspect]
     Active Substance: NEVIRAPINE
     Indication: HIV infection
     Route: 048
  12. TENOFOVIR [Suspect]
     Active Substance: TENOFOVIR
     Indication: HIV infection
     Route: 048
  13. TENOFOVIR [Suspect]
     Active Substance: TENOFOVIR
     Route: 065
  14. ZIDOVUDINE [Suspect]
     Active Substance: ZIDOVUDINE
     Indication: HIV infection
     Route: 048
  15. ZIDOVUDINE [Suspect]
     Active Substance: ZIDOVUDINE
     Route: 065
  16. ABACAVIR SULFATE [Suspect]
     Active Substance: ABACAVIR SULFATE
     Indication: HIV infection
     Route: 048
  17. ABACAVIR SULFATE [Suspect]
     Active Substance: ABACAVIR SULFATE
     Indication: Antiretroviral therapy
     Route: 065
  18. ABACAVIR SUCCINATE [Suspect]
     Active Substance: ABACAVIR SUCCINATE
     Indication: HIV infection
     Route: 065
  19. ABACAVIR SUCCINATE [Suspect]
     Active Substance: ABACAVIR SUCCINATE
     Indication: Antiretroviral therapy
     Route: 048
  20. CRIXIVAN [Suspect]
     Active Substance: INDINAVIR SULFATE
     Indication: HIV infection
     Route: 048
  21. DELAVIRDINE MESYLATE [Suspect]
     Active Substance: DELAVIRDINE MESYLATE
     Indication: HIV infection
     Route: 048
  22. DELAVIRDINE MESYLATE [Suspect]
     Active Substance: DELAVIRDINE MESYLATE
     Route: 065
  23. DELAVIRDINE MESYLATE [Suspect]
     Active Substance: DELAVIRDINE MESYLATE
     Indication: HIV infection
     Route: 048
  24. DIDANOSINE [Suspect]
     Active Substance: DIDANOSINE
     Indication: HIV infection
     Route: 065
  25. DIDANOSINE [Suspect]
     Active Substance: DIDANOSINE
     Route: 065
  26. DIDANOSINE [Suspect]
     Active Substance: DIDANOSINE
     Route: 065
  27. ETRAVIRINE [Suspect]
     Active Substance: ETRAVIRINE
     Indication: HIV infection
     Route: 048
  28. ETRAVIRINE [Suspect]
     Active Substance: ETRAVIRINE
     Indication: HIV infection
     Route: 048
  29. ETRAVIRINE [Suspect]
     Active Substance: ETRAVIRINE
     Indication: Antiretroviral therapy
     Route: 065
  30. ENFUVIRTIDE [Suspect]
     Active Substance: ENFUVIRTIDE
     Indication: HIV infection
     Route: 058
  31. ENFUVIRTIDE [Suspect]
     Active Substance: ENFUVIRTIDE
     Route: 048
  32. FUZEON [Suspect]
     Active Substance: ENFUVIRTIDE
     Indication: Product used for unknown indication
     Route: 058
  33. INDINAVIR SULFATE [Suspect]
     Active Substance: INDINAVIR SULFATE
     Indication: HIV infection
     Route: 048
  34. INDINAVIR SULFATE [Suspect]
     Active Substance: INDINAVIR SULFATE
     Route: 065
  35. INTELENCE [Suspect]
     Active Substance: ETRAVIRINE
     Indication: HIV infection
     Route: 048
  36. INTELENCE [Suspect]
     Active Substance: ETRAVIRINE
     Route: 065
  37. ISENTRESS [Suspect]
     Active Substance: RALTEGRAVIR POTASSIUM
     Indication: HIV infection
     Route: 048
  38. ISENTRESS [Suspect]
     Active Substance: RALTEGRAVIR POTASSIUM
     Route: 065
  39. KALETRA [Suspect]
     Active Substance: LOPINAVIR\RITONAVIR
     Indication: HIV infection
     Route: 048
  40. KALETRA [Suspect]
     Active Substance: LOPINAVIR\RITONAVIR
     Indication: Antiretroviral therapy
     Route: 065
  41. LOPINAVIR [Suspect]
     Active Substance: LOPINAVIR
     Indication: HIV infection
     Route: 065
  42. LOPINAVIR\RITONAVIR [Suspect]
     Active Substance: LOPINAVIR\RITONAVIR
     Indication: HIV infection
     Route: 065
  43. NELFINAVIR MESYLATE [Suspect]
     Active Substance: NELFINAVIR MESYLATE
     Indication: HIV infection
     Route: 048
  44. NELFINAVIR MESYLATE [Suspect]
     Active Substance: NELFINAVIR MESYLATE
     Route: 065
  45. NORVIR [Suspect]
     Active Substance: RITONAVIR
     Indication: HIV infection
     Route: 048
  46. NORVIR [Suspect]
     Active Substance: RITONAVIR
     Indication: Antiretroviral therapy
     Route: 065
  47. NORVIR [Suspect]
     Active Substance: RITONAVIR
     Route: 065
  48. PREZISTA [Suspect]
     Active Substance: DARUNAVIR ETHANOLATE
     Indication: HIV infection
     Route: 048
  49. RALTEGRAVIR [Suspect]
     Active Substance: RALTEGRAVIR
     Indication: HIV infection
     Dosage: 400 MILLIGRAM, ONCE A DAY
     Route: 048
  50. RALTEGRAVIR POTASSIUM [Suspect]
     Active Substance: RALTEGRAVIR POTASSIUM
     Indication: HIV infection
     Route: 048
  51. RITONAVIR [Suspect]
     Active Substance: RITONAVIR
     Indication: HIV infection
     Route: 065
  52. SAQUINAVIR [Suspect]
     Active Substance: SAQUINAVIR
     Indication: HIV infection
     Route: 048
  53. SAQUINAVIR [Suspect]
     Active Substance: SAQUINAVIR
     Route: 065
  54. STAVUDINE [Suspect]
     Active Substance: STAVUDINE
     Indication: HIV infection
     Route: 048
  55. STAVUDINE [Suspect]
     Active Substance: STAVUDINE
     Indication: HIV infection
     Route: 048
  56. SUSTIVA [Suspect]
     Active Substance: EFAVIRENZ
     Indication: HIV infection
     Route: 048
  57. VIREAD [Suspect]
     Active Substance: TENOFOVIR DISOPROXIL FUMARATE
     Indication: HIV infection
     Route: 048
  58. VIREAD [Suspect]
     Active Substance: TENOFOVIR DISOPROXIL FUMARATE
     Route: 048
  59. RESCRIPTOR [Suspect]
     Active Substance: DELAVIRDINE MESYLATE
     Indication: HIV infection
     Route: 048
  60. RESCRIPTOR [Suspect]
     Active Substance: DELAVIRDINE MESYLATE
     Route: 065
  61. VIRACEPT [Suspect]
     Active Substance: NELFINAVIR MESYLATE
     Indication: HIV infection
     Route: 065
  62. VIRAMUNE [Suspect]
     Active Substance: NEVIRAPINE
     Indication: HIV infection
     Route: 048
  63. VIRAMUNE [Suspect]
     Active Substance: NEVIRAPINE
     Route: 065
  64. VIDEX EC [Suspect]
     Active Substance: DIDANOSINE
     Indication: HIV infection
     Route: 048
  65. ENFUVIRTIDE [Suspect]
     Active Substance: ENFUVIRTIDE
     Indication: HIV infection
     Route: 058
  66. ZIAGEN [Suspect]
     Active Substance: ABACAVIR SULFATE
     Indication: Product used for unknown indication
     Route: 065
  67. ZERIT [Suspect]
     Active Substance: STAVUDINE
     Indication: HIV infection
     Route: 065
  68. ZERIT [Suspect]
     Active Substance: STAVUDINE
     Route: 048
  69. ATAZANAVIR [Suspect]
     Active Substance: ATAZANAVIR
     Indication: HIV infection
     Route: 048
  70. ATAZANAVIR [Suspect]
     Active Substance: ATAZANAVIR
     Indication: Antiretroviral therapy
     Route: 048
  71. NELFINAVIR MESYLATE [Suspect]
     Active Substance: NELFINAVIR MESYLATE
     Indication: HIV infection
     Route: 065

REACTIONS (9)
  - Blood lactic acid increased [Not Recovered/Not Resolved]
  - Diplopia [Not Recovered/Not Resolved]
  - Dysphagia [Not Recovered/Not Resolved]
  - Eyelid ptosis [Not Recovered/Not Resolved]
  - Lipodystrophy acquired [Not Recovered/Not Resolved]
  - Mitochondrial toxicity [Not Recovered/Not Resolved]
  - Progressive external ophthalmoplegia [Not Recovered/Not Resolved]
  - Aphasia [Not Recovered/Not Resolved]
  - Ophthalmoplegia [Not Recovered/Not Resolved]
